FAERS Safety Report 5767320-X (Version None)
Quarter: 2008Q2

REPORT INFORMATION
  Report Type: 
  Country: None (occurrence: None)
  Receive Date: 20080606
  Receipt Date: 20080522
  Transmission Date: 20081010
  Serious: Yes (Hospitalization)
  Sender: FDA-Public Use
  Company Number: SPV1-2008-01241

PATIENT
  Age: 50 Year
  Sex: Female

DRUGS (10)
  1. MIDODRINE HYDROCHLORIDE [Suspect]
     Indication: ORTHOSTATIC HYPOTENSION
     Dosage: 6 TABLETS DAILY IF HYPOTENSION, ORAL
     Route: 048
     Dates: start: 20070913, end: 20070917
  2. MIDODRINE HYDROCHLORIDE [Suspect]
     Indication: ORTHOSTATIC HYPOTENSION
     Dosage: 6 TABLETS DAILY IF HYPOTENSION, ORAL
     Route: 048
     Dates: start: 20070918
  3. TERCIAN /00759301/(CYAMEMAZINE) ORAL SOLUTION [Concomitant]
  4. RISPERDAL (RISPERIDONE) ORAL SOLUTION [Concomitant]
  5. RIVOTRIL (CLONAZEPAM) ORAL SOLUTION [Concomitant]
  6. ZOPICLONE (ZOPICLONE) [Concomitant]
  7. SULFARLEM /00558302/ (ANETHOLE TRITHIONE) [Concomitant]
  8. LEPTICUR (TROPATEPINE HYDROCHLORIDE) TABLET [Concomitant]
  9. AERIUS /01398501/(DESLORATADINE) TABLET [Concomitant]
  10. ZITHROMAX [Concomitant]

REACTIONS (3)
  - DYSPHAGIA [None]
  - LIP OEDEMA [None]
  - ORAL FUNGAL INFECTION [None]
